FAERS Safety Report 8385882-3 (Version None)
Quarter: 2012Q2

REPORT INFORMATION
  Report Type: 
  Country: None (occurrence: None)
  Receive Date: 20120525
  Receipt Date: 20120516
  Transmission Date: 20120825
  Serious: Yes (Other)
  Sender: FDA-Public Use
  Company Number: IE-US-EMD SERONO, INC.-7133570

PATIENT
  Sex: Female

DRUGS (1)
  1. REBIF [Suspect]
     Indication: RELAPSING-REMITTING MULTIPLE SCLEROSIS
     Route: 058
     Dates: start: 20010626

REACTIONS (3)
  - LIVER FUNCTION TEST ABNORMAL [None]
  - SYRINGOMYELIA [None]
  - INTERVERTEBRAL DISC PROTRUSION [None]
